FAERS Safety Report 16169893 (Version 1)
Quarter: 2019Q2

REPORT INFORMATION
  Report Type: Spontaneous
  Country: US (occurrence: US)
  Receive Date: 20190305
  Receipt Date: 20190305
  Transmission Date: 20190711
  Serious: Yes (Hospitalization)
  Sender: FDA-Public Use
  Company Number: None

PATIENT
  Age: 15 Year
  Sex: Male

DRUGS (8)
  1. DEKAS [Concomitant]
  2. LORATADINE 10MG [Suspect]
     Active Substance: LORATADINE
     Indication: CYSTIC FIBROSIS
     Route: 048
     Dates: start: 20180719
  3. LASOPROZOLE [Concomitant]
  4. VITAMIN D3 [Concomitant]
     Active Substance: CHOLECALCIFEROL
  5. AZITHROMYCIN ANHYDROUS. [Concomitant]
     Active Substance: AZITHROMYCIN ANHYDROUS
  6. PULMOZYNE [Concomitant]
  7. VENTOLIN [Concomitant]
     Active Substance: ALBUTEROL SULFATE
  8. CREON [Concomitant]
     Active Substance: PANCRELIPASE AMYLASE\PANCRELIPASE LIPASE\PANCRELIPASE PROTEASE

REACTIONS (3)
  - Therapy cessation [None]
  - Road traffic accident [None]
  - Lower limb fracture [None]

NARRATIVE: CASE EVENT DATE: 20180901
